FAERS Safety Report 7057837-2 (Version None)
Quarter: 2010Q4

REPORT INFORMATION
  Report Type: 
  Country: None (occurrence: None)
  Receive Date: 20101022
  Receipt Date: 20101011
  Transmission Date: 20110411
  Serious: Yes (Other)
  Sender: FDA-Public Use
  Company Number: BR-PFIZER INC-2010130473

PATIENT
  Age: 25 Year
  Sex: Male

DRUGS (5)
  1. SERTRALINE HYDROCHLORIDE [Suspect]
     Indication: SOCIAL PHOBIA
     Dosage: UNK
  2. CITALOPRAM [Suspect]
     Indication: SOCIAL PHOBIA
     Dosage: UNK
  3. CLONAZEPAM [Suspect]
     Indication: SOCIAL PHOBIA
     Dosage: UNK
  4. ESCITALOPRAM [Suspect]
     Indication: SOCIAL PHOBIA
     Dosage: 20MG/DAY
  5. VENLAFAXINE [Suspect]
     Indication: SOCIAL PHOBIA
     Dosage: 225MG/DAY

REACTIONS (4)
  - DRUG INEFFECTIVE [None]
  - DYSPHORIA [None]
  - SEDATION [None]
  - SEXUAL DYSFUNCTION [None]
